FAERS Safety Report 10277093 (Version 1)
Quarter: 2014Q3

REPORT INFORMATION
  Report Type: Spontaneous
  Country: GB (occurrence: GB)
  Receive Date: 20140703
  Receipt Date: 20140703
  Transmission Date: 20150326
  Serious: Yes (Other)
  Sender: FDA-Public Use
  Company Number: GB-GLAXOSMITHKLINE-B1009861A

PATIENT

DRUGS (1)
  1. ADARTREL [Suspect]
     Active Substance: ROPINIROLE

REACTIONS (2)
  - Gastrostomy [Unknown]
  - Dysphagia [Not Recovered/Not Resolved]
